FAERS Safety Report 8374658-9 (Version None)
Quarter: 2012Q2

REPORT INFORMATION
  Report Type: 
  Country: None (occurrence: None)
  Receive Date: 20120521
  Receipt Date: 20120102
  Transmission Date: 20120825
  Serious: No
  Sender: FDA-Public Use
  Company Number: US-ASTRAZENECA-2012SE04721

PATIENT
  Age: 61 Year
  Sex: Female

DRUGS (6)
  1. PRILOSEC OTC [Suspect]
     Indication: CHEST DISCOMFORT
     Route: 048
     Dates: start: 20111230, end: 20111230
  2. ATIVAN [Concomitant]
     Indication: ANXIETY
     Dosage: UNKNOWN
  3. PRILOSEC OTC [Suspect]
     Route: 048
  4. PRILOSEC OTC [Suspect]
     Route: 048
  5. PRILOSEC OTC [Suspect]
     Indication: CHEST PAIN
     Route: 048
     Dates: start: 20111230, end: 20111230
  6. UNITHROID [Concomitant]
     Dosage: UNKNOWN

REACTIONS (4)
  - DYSPNOEA [None]
  - ABDOMINAL PAIN UPPER [None]
  - ANXIETY [None]
  - CHEST PAIN [None]
